FAERS Safety Report 14158552 (Version 3)
Quarter: 2019Q1

REPORT INFORMATION
  Report Type: Spontaneous
  Country: GB (occurrence: GB)
  Receive Date: 20171106
  Receipt Date: 20190201
  Transmission Date: 20190417
  Serious: Yes (Death, Hospitalization, Other)
  Sender: FDA-Public Use
  Company Number: GB-CONCORDIA PHARMACEUTICALS INC.-E2B_00007665

PATIENT
  Age: 79 Year
  Sex: Female

DRUGS (6)
  1. PREDNISOLONE. [Suspect]
     Active Substance: PREDNISOLONE
     Indication: ANTI-NEUTROPHIL CYTOPLASMIC ANTIBODY POSITIVE VASCULITIS
     Dosage: TAPERING
     Route: 048
  2. CYCLOPHOSPHAMIDE. [Suspect]
     Active Substance: CYCLOPHOSPHAMIDE
     Indication: ANTI-NEUTROPHIL CYTOPLASMIC ANTIBODY POSITIVE VASCULITIS
     Dosage: 100 MG NOCTE
  3. GANCICLOVIR. [Suspect]
     Active Substance: GANCICLOVIR
  4. PREDNISOLONE. [Suspect]
     Active Substance: PREDNISOLONE
     Indication: ANTI-NEUTROPHIL CYTOPLASMIC ANTIBODY POSITIVE VASCULITIS
     Dosage: 6 WK OF HIGH DOSE
  5. ACICLOVIR [Suspect]
     Active Substance: ACYCLOVIR
     Route: 042
  6. COTRIMOXAZOLE [Concomitant]
     Active Substance: SULFAMETHOXAZOLE\TRIMETHOPRIM
     Indication: PROPHYLAXIS

REACTIONS (4)
  - Oesophagitis haemorrhagic [Fatal]
  - Gastrointestinal disorder [Fatal]
  - Duodenitis [Fatal]
  - Drug ineffective [Unknown]
